FAERS Safety Report 11791608 (Version 1)
Quarter: 2015Q4

REPORT INFORMATION
  Report Type: Spontaneous
  Country: GB (occurrence: GB)
  Receive Date: 20151201
  Receipt Date: 20151201
  Transmission Date: 20160305
  Serious: Yes (Other)
  Sender: FDA-Public Use
  Company Number: GB-BRISTOL-MYERS SQUIBB COMPANY-BMS-2015-079873

PATIENT

DRUGS (1)
  1. HYDROXYUREA. [Suspect]
     Active Substance: HYDROXYUREA
     Indication: POLYCYTHAEMIA VERA
     Dosage: 710 MG, QD (RANGE 143MG TO 1500MG)
     Route: 065

REACTIONS (3)
  - Dyspnoea [Unknown]
  - Drug intolerance [Unknown]
  - Cardiac disorder [Unknown]
